FAERS Safety Report 18739099 (Version 1)
Quarter: 2021Q1

REPORT INFORMATION
  Report Type: Spontaneous
  Country: US (occurrence: US)
  Receive Date: 20210114
  Receipt Date: 20210114
  Transmission Date: 20210419
  Serious: Yes (Hospitalization, Disabling)
  Sender: FDA-Public Use
  Company Number: US-PFIZER INC-2003036852

PATIENT
  Age: 66 Year
  Sex: Male

DRUGS (3)
  1. SIMVASTATIN. [Suspect]
     Active Substance: SIMVASTATIN
     Indication: HYPERCHOLESTEROLAEMIA
     Dosage: 80 MG, DAILY
     Route: 065
  2. METFORMIN HCL [Concomitant]
     Active Substance: METFORMIN HYDROCHLORIDE
  3. GEMFIBROZIL. [Suspect]
     Active Substance: GEMFIBROZIL
     Indication: HYPERCHOLESTEROLAEMIA
     Dosage: 600 MG, 2X/DAY
     Route: 065

REACTIONS (5)
  - Muscular weakness [Unknown]
  - Renal failure [Unknown]
  - Pain [Unknown]
  - Rhabdomyolysis [Not Recovered/Not Resolved]
  - Myoglobinuria [Unknown]
